FAERS Safety Report 23208475 (Version 1)
Quarter: 2023Q4

REPORT INFORMATION
  Report Type: Report from Study
  Country: US (occurrence: US)
  Receive Date: 20231121
  Receipt Date: 20231121
  Transmission Date: 20240109
  Serious: Yes (Hospitalization, Other)
  Sender: FDA-Public Use
  Company Number: US-ALXN-A202307401AA

PATIENT
  Sex: Male

DRUGS (5)
  1. SOLIRIS [Suspect]
     Active Substance: ECULIZUMAB
     Indication: Myasthenia gravis
     Dosage: UNK, Q2W
     Route: 042
  2. MYCOPHENOLIC ACID [Concomitant]
     Active Substance: MYCOPHENOLIC ACID
     Indication: Product used for unknown indication
     Dosage: 1000 MG, BID
     Route: 065
  3. MYCOPHENOLIC ACID [Concomitant]
     Active Substance: MYCOPHENOLIC ACID
     Dosage: 500 MG, BID
     Route: 065
  4. PREDNISONE [Concomitant]
     Active Substance: PREDNISONE
     Indication: Product used for unknown indication
     Dosage: 20 MG, UNK
     Route: 065
  5. PREDNISONE [Concomitant]
     Active Substance: PREDNISONE
     Dosage: 10 MG, UNK
     Route: 065

REACTIONS (11)
  - Abscess bacterial [Unknown]
  - Escherichia infection [Unknown]
  - Dysphagia [Unknown]
  - Jaw disorder [Unknown]
  - Gait disturbance [Not Recovered/Not Resolved]
  - Lumbar vertebral fracture [Unknown]
  - Arthropathy [Unknown]
  - Scar [Unknown]
  - Hypoaesthesia [Unknown]
  - Dysstasia [Unknown]
  - Back pain [Unknown]

NARRATIVE: CASE EVENT DATE: 20230501
